FAERS Safety Report 6411415-4 (Version None)
Quarter: 2009Q4

REPORT INFORMATION
  Report Type: 
  Country: None (occurrence: None)
  Receive Date: 20091023
  Receipt Date: 20091015
  Transmission Date: 20100525
  Serious: Yes (Other)
  Sender: FDA-Public Use
  Company Number: US-ELI_LILLY_AND_COMPANY-US200910003595

PATIENT
  Sex: Female

DRUGS (7)
  1. HUMULIN N [Suspect]
  2. METFORMIN HCL [Concomitant]
  3. LISINOPRIL [Concomitant]
  4. DOXYCYCLINE [Concomitant]
  5. NEXIUM [Concomitant]
  6. CELEXA [Concomitant]
  7. LIPITOR [Concomitant]

REACTIONS (6)
  - AGITATION [None]
  - FEAR [None]
  - MEMORY IMPAIRMENT [None]
  - RETINAL ARTERY OCCLUSION [None]
  - THINKING ABNORMAL [None]
  - VISUAL IMPAIRMENT [None]
